FAERS Safety Report 6446212-7 (Version None)
Quarter: 2009Q4

REPORT INFORMATION
  Report Type: 
  Country: None (occurrence: None)
  Receive Date: 20091119
  Receipt Date: 20091026
  Transmission Date: 20100525
  Serious: Yes (Death)
  Sender: FDA-Public Use
  Company Number: US-EISAI INC.-E2020-05149-CLI-US

PATIENT
  Sex: Male
  Weight: 90.9 kg

DRUGS (13)
  1. ARICEPT [Suspect]
     Route: 048
     Dates: start: 20090505, end: 20090101
  2. ARICEPT [Suspect]
     Route: 048
     Dates: start: 20090605, end: 20090622
  3. DIMEBON [Suspect]
     Route: 048
     Dates: start: 20090323, end: 20090722
  4. EXELON [Suspect]
     Dosage: AT NIGHT
     Route: 062
     Dates: start: 20090623, end: 20090630
  5. EXELON [Suspect]
     Dosage: APPLIED INTERMITTENTLY
     Route: 062
     Dates: start: 20090704, end: 20090720
  6. MIRTAZAPINE [Concomitant]
     Dates: start: 20070101, end: 20090722
  7. DEPLIN [Concomitant]
     Dates: start: 20080703, end: 20090722
  8. FLOMAX [Concomitant]
     Dates: start: 20040101, end: 20090722
  9. M.V.I. [Concomitant]
     Dates: start: 20080101, end: 20090722
  10. AVODART [Concomitant]
     Dates: start: 20040101, end: 20090722
  11. XANAX [Concomitant]
     Dosage: 1.5MG; 0.25MG AS NEEDED
     Route: 048
     Dates: start: 20080701, end: 20090722
  12. XANAX XR [Concomitant]
     Route: 048
     Dates: start: 20080701, end: 20090722
  13. SONATA [Concomitant]
     Dates: start: 20081014, end: 20090722

REACTIONS (1)
  - COMPLETED SUICIDE [None]
